FAERS Safety Report 6677317-3 (Version None)
Quarter: 2010Q2

REPORT INFORMATION
  Report Type: 
  Country: None (occurrence: None)
  Receive Date: 20100408
  Receipt Date: 20100408
  Transmission Date: 20101027
  Serious: No
  Sender: FDA-Public Use
  Company Number: None

PATIENT
  Age: 60 Year
  Sex: Female
  Weight: 55.7924 kg

DRUGS (9)
  1. DILAUDID [Suspect]
     Indication: PAIN
     Dosage: 2 MG Q1 PRN IV
     Route: 042
     Dates: start: 20100120, end: 20100126
  2. ADVAIR DISKUS 100/50 [Concomitant]
  3. LOVENOX [Concomitant]
  4. MORPHINE [Concomitant]
  5. PROZAC [Concomitant]
  6. OXYCONTIN [Concomitant]
  7. SENOKOT [Concomitant]
  8. NEURONTIN [Concomitant]
  9. PRILOSEC [Concomitant]

REACTIONS (1)
  - URTICARIA [None]
